FAERS Safety Report 21400265 (Version 1)
Quarter: 2022Q4

REPORT INFORMATION
  Report Type: Spontaneous
  Country: US (occurrence: US)
  Receive Date: 20221002
  Receipt Date: 20221002
  Transmission Date: 20230112
  Serious: Yes (Other)
  Sender: FDA-Public Use
  Company Number: US-JNJFOC-20220951712

PATIENT
  Age: 79 Year
  Sex: Male

DRUGS (1)
  1. XARELTO [Suspect]
     Active Substance: RIVAROXABAN
     Indication: Thrombosis
     Dosage: PACKAGE 15MG-20MG..SOMETHING HERE GOES THRU DAY 14 AND GOES THRU DAY 21 THEN SWITCHES OVER TODAY 22
     Route: 048
     Dates: start: 20220918

REACTIONS (4)
  - Thrombosis [Unknown]
  - Haemorrhage [Unknown]
  - Blister [Unknown]
  - Feeling hot [Unknown]
